FAERS Safety Report 12066892 (Version 12)
Quarter: 2017Q1

REPORT INFORMATION
  Report Type: Spontaneous
  Country: US (occurrence: US)
  Receive Date: 20160211
  Receipt Date: 20170323
  Transmission Date: 20170428
  Serious: Yes (Congenital Anomaly, Other)
  Sender: FDA-Public Use
  Company Number: PHEH2016US003259

PATIENT
  Sex: Female

DRUGS (6)
  1. ONDANSETRON. [Suspect]
     Active Substance: ONDANSETRON
     Indication: FOETAL EXPOSURE DURING PREGNANCY
     Route: 064
  2. ONDANSETRON HYDROCHLORIDE. [Suspect]
     Active Substance: ONDANSETRON HYDROCHLORIDE
     Indication: FOETAL EXPOSURE DURING PREGNANCY
     Route: 064
  3. ONDANSETRONE TEVA [Suspect]
     Active Substance: ONDANSETRON HYDROCHLORIDE
     Indication: FOETAL EXPOSURE DURING PREGNANCY
     Route: 064
  4. ZOFRAN [Suspect]
     Active Substance: ONDANSETRON HYDROCHLORIDE
     Indication: FOETAL EXPOSURE DURING PREGNANCY
     Route: 064
  5. ONDANSETRON HYDROCHLORIDE. [Suspect]
     Active Substance: ONDANSETRON HYDROCHLORIDE
     Indication: FOETAL EXPOSURE DURING PREGNANCY
     Route: 064
  6. ONDANSETRON AUROBINDO [Suspect]
     Active Substance: ONDANSETRON HYDROCHLORIDE
     Indication: FOETAL EXPOSURE DURING PREGNANCY
     Route: 064

REACTIONS (13)
  - Pain [Unknown]
  - Attention deficit/hyperactivity disorder [Unknown]
  - Foetal exposure during pregnancy [Unknown]
  - Bronchitis [Unknown]
  - Cough [Unknown]
  - Heart disease congenital [Unknown]
  - Congenital anomaly [Unknown]
  - Anxiety [Unknown]
  - Ventricular septal defect [Unknown]
  - Emotional distress [Unknown]
  - Conjunctivitis [Unknown]
  - Injury [Unknown]
  - Anhedonia [Unknown]
